FAERS Safety Report 10038903 (Version 1)
Quarter: 2014Q1

REPORT INFORMATION
  Report Type: Spontaneous
  Country: RO (occurrence: RO)
  Receive Date: 20140326
  Receipt Date: 20140326
  Transmission Date: 20141002
  Serious: Yes (Death, Life-Threatening, Hospitalization)
  Sender: FDA-Public Use
  Company Number: RO-JNJFOC-20140313544

PATIENT
  Age: 50 Year
  Sex: Male

DRUGS (7)
  1. REMICADE [Suspect]
     Indication: ANKYLOSING SPONDYLITIS
     Route: 042
     Dates: start: 20120505, end: 20140205
  2. ISONIAZID [Concomitant]
     Indication: MYCOBACTERIUM TUBERCULOSIS COMPLEX TEST POSITIVE
     Route: 042
     Dates: start: 20130727
  3. ISONIAZID [Concomitant]
     Indication: PROPHYLACTIC CHEMOTHERAPY
     Route: 042
     Dates: start: 20130727
  4. ALFACALCIDOL [Concomitant]
     Indication: HYPERPARATHYROIDISM SECONDARY
     Route: 042
     Dates: start: 20110428
  5. METOPROLOL [Concomitant]
     Indication: ATRIAL FIBRILLATION
     Route: 042
     Dates: start: 20131003
  6. NIFEDIPINE [Concomitant]
     Indication: ATRIAL FIBRILLATION
     Route: 042
     Dates: start: 20131003
  7. THYROZOL [Concomitant]
     Indication: HYPERTHYROIDISM
     Route: 048
     Dates: start: 20131003

REACTIONS (10)
  - Cardio-respiratory arrest [Fatal]
  - Pleural effusion [Unknown]
  - Hyperkalaemia [Unknown]
  - Pyrexia [Unknown]
  - Acute respiratory failure [Unknown]
  - Sepsis [Unknown]
  - Arteriovenous fistula thrombosis [Unknown]
  - Pneumonia [Unknown]
  - Mycobacterium tuberculosis complex test positive [Unknown]
  - Atrial fibrillation [Unknown]
